FAERS Safety Report 7039890-5 (Version None)
Quarter: 2010Q4

REPORT INFORMATION
  Report Type: 
  Country: None (occurrence: None)
  Receive Date: 20101012
  Receipt Date: 20101004
  Transmission Date: 20110411
  Serious: Yes (Other)
  Sender: FDA-Public Use
  Company Number: US-PFIZER INC-2010070345

PATIENT
  Sex: Female
  Weight: 67.574 kg

DRUGS (7)
  1. LIPITOR [Suspect]
     Indication: HYPERLIPIDAEMIA
     Dosage: 10 MG, 1X/DAY
  2. PREMPRO [Suspect]
     Dosage: [CONJUGATED ESTROGENS 0.3]/[MEDROXYPROGESTERONE1.5 MG], UNK
  3. SYNTHROID [Concomitant]
     Dosage: UNK
  4. DYAZIDE [Concomitant]
     Indication: MENIERE'S DISEASE
     Dosage: UNK
  5. POTASSIUM [Concomitant]
     Dosage: UNK
  6. AMLODIPINE [Concomitant]
     Dosage: UNK
  7. MULTI-VITAMINS [Concomitant]
     Dosage: UNK

REACTIONS (8)
  - FATIGUE [None]
  - HOSTILITY [None]
  - IRRITABILITY [None]
  - MUSCLE SPASMS [None]
  - MUSCULAR WEAKNESS [None]
  - MYALGIA [None]
  - PAIN [None]
  - SKIN DISORDER [None]
